FAERS Safety Report 20737251 (Version 2)
Quarter: 2022Q2

REPORT INFORMATION
  Report Type: Report from Study
  Country: DE (occurrence: DE)
  Receive Date: 20220421
  Receipt Date: 20220518
  Transmission Date: 20220721
  Serious: Yes (Hospitalization, Other)
  Sender: FDA-Public Use
  Company Number: DE-BRISTOL-MYERS SQUIBB COMPANY-2022-022824

PATIENT
  Age: 56 Year
  Sex: Male
  Weight: 52.2 kg

DRUGS (15)
  1. PACLITAXEL [Suspect]
     Active Substance: PACLITAXEL
     Indication: Squamous cell carcinoma of head and neck
     Dosage: DAYS 1,8,15 +AMP; 22 PER CYCLE (100 MG/M2,1 IN 1 WK)
     Route: 042
     Dates: start: 20211130, end: 20211228
  2. TILSOTOLIMOD [Suspect]
     Active Substance: TILSOTOLIMOD
     Indication: Squamous cell carcinoma of head and neck
     Dosage: C1D1, C1D8, C1D15, C2D1, C2D15, C3D15 (8 MG)
     Dates: start: 20211130
  3. SCOPOLAMINE [Concomitant]
     Active Substance: SCOPOLAMINE
     Indication: Salivary hypersecretion
     Dosage: 1 IN 3 D
     Route: 023
  4. SCOPOLAMINE [Concomitant]
     Active Substance: SCOPOLAMINE
     Dosage: 1 IN 3 D
     Route: 023
     Dates: start: 20210901
  5. FENTANYL [Concomitant]
     Active Substance: FENTANYL
     Indication: Neck pain
     Dosage: 1 IN 3 D
     Route: 023
     Dates: start: 20211220, end: 20220110
  6. FENTANYL [Concomitant]
     Active Substance: FENTANYL
     Indication: Headache
     Dosage: 1 IN 3 D
     Route: 023
  7. FENTANYL [Concomitant]
     Active Substance: FENTANYL
     Dosage: 1 IN 3 D
     Route: 023
     Dates: start: 20220111
  8. FENTANYL CITRATE [Concomitant]
     Active Substance: FENTANYL CITRATE
     Indication: Neck pain
     Dosage: 1 AS REQUIRED
     Route: 048
     Dates: start: 20211220, end: 20220110
  9. FENTANYL CITRATE [Concomitant]
     Active Substance: FENTANYL CITRATE
     Indication: Headache
     Dosage: 1 AS REQUIRED
     Route: 048
  10. FENTANYL CITRATE [Concomitant]
     Active Substance: FENTANYL CITRATE
     Dosage: 1 AS REQUIRED
     Route: 048
     Dates: start: 20220111
  11. NOVALGIN (METAMIZOLE SODIUM) [Concomitant]
     Active Substance: METAMIZOLE SODIUM
     Indication: Headache
     Route: 048
  12. NOVALGIN (METAMIZOLE SODIUM) [Concomitant]
     Active Substance: METAMIZOLE SODIUM
     Indication: Neck pain
  13. LEVOTHYROXINE SODIUM [Concomitant]
     Active Substance: LEVOTHYROXINE SODIUM
     Indication: Hypothyroidism
     Route: 048
     Dates: start: 20211227
  14. MCP [Concomitant]
     Active Substance: METOCLOPRAMIDE HYDROCHLORIDE
     Indication: Nausea
     Dosage: AS REQUIRED
     Route: 048
     Dates: start: 20201101
  15. ESOMEPRAZOLE [Concomitant]
     Active Substance: ESOMEPRAZOLE
     Indication: Prophylaxis
     Route: 048
     Dates: start: 20211202

REACTIONS (3)
  - Small intestinal haemorrhage [Recovered/Resolved]
  - Abscess [Recovered/Resolved]
  - Gastrointestinal haemorrhage [Recovered/Resolved]

NARRATIVE: CASE EVENT DATE: 20220104
